FAERS Safety Report 21693383 (Version 1)
Quarter: 2022Q4

REPORT INFORMATION
  Report Type: Spontaneous
  Country: US (occurrence: US)
  Receive Date: 20221207
  Receipt Date: 20221207
  Transmission Date: 20230112
  Serious: No
  Sender: FDA-Public Use
  Company Number: US-SA-SAC20221206000703

PATIENT
  Age: 78 Year
  Sex: Female

DRUGS (8)
  1. DUPIXENT [Suspect]
     Active Substance: DUPILUMAB
     Indication: Asthma
     Dosage: UNK UNK, QOW
     Route: 058
     Dates: start: 20221101
  2. ADDERALL [Concomitant]
     Active Substance: AMPHETAMINE ASPARTATE\AMPHETAMINE SULFATE\DEXTROAMPHETAMINE SACCHARATE\DEXTROAMPHETAMINE SULFATE
  3. CELECOXIB [Concomitant]
     Active Substance: CELECOXIB
  4. LOSARTAN [Concomitant]
     Active Substance: LOSARTAN
  5. KLONOPIN [Concomitant]
     Active Substance: CLONAZEPAM
  6. SIMVASTATIN [Concomitant]
     Active Substance: SIMVASTATIN
  7. GABAPENTIN [Concomitant]
     Active Substance: GABAPENTIN
  8. METAMUCIL [Concomitant]
     Active Substance: PLANTAGO SEED

REACTIONS (3)
  - Injection site pain [Unknown]
  - Incorrect dose administered [Unknown]
  - Wrong technique in product usage process [Unknown]

NARRATIVE: CASE EVENT DATE: 20221101
